FAERS Safety Report 10655714 (Version 3)
Quarter: 2015Q1

REPORT INFORMATION
  Report Type: Spontaneous
  Country: US (occurrence: US)
  Receive Date: 20141216
  Receipt Date: 20150217
  Transmission Date: 20150720
  Serious: No
  Sender: FDA-Public Use
  Company Number: US-PFIZER INC-2014343854

PATIENT
  Age: 56 Year
  Sex: Female

DRUGS (1)
  1. DEPO-MEDROL [Suspect]
     Active Substance: METHYLPREDNISOLONE ACETATE
     Dosage: 80 MG, SINGLE(1 SHOT)

REACTIONS (2)
  - Insomnia [Unknown]
  - Muscle twitching [Not Recovered/Not Resolved]
